FAERS Safety Report 11231127 (Version 1)
Quarter: 2015Q3

REPORT INFORMATION
  Report Type: Spontaneous
  Country: RU (occurrence: RU)
  Receive Date: 20150701
  Receipt Date: 20150701
  Transmission Date: 20151125
  Serious: Yes (Hospitalization)
  Sender: FDA-Public Use
  Company Number: RU-SUN PHARMACEUTICAL INDUSTRIES LTD-2015R1-97511

PATIENT
  Sex: Female

DRUGS (1)
  1. FUROSEMIDE. [Suspect]
     Active Substance: FUROSEMIDE
     Indication: PRODUCT USED FOR UNKNOWN INDICATION
     Dosage: UNK
     Route: 065

REACTIONS (16)
  - Acute kidney injury [Not Recovered/Not Resolved]
  - Gout [Unknown]
  - Thrombocytosis [Not Recovered/Not Resolved]
  - Anaemia [Not Recovered/Not Resolved]
  - Tubulointerstitial nephritis [Unknown]
  - Gastrooesophageal reflux disease [Unknown]
  - Seizure [Recovered/Resolved]
  - Self-medication [Unknown]
  - Hyperparathyroidism [Not Recovered/Not Resolved]
  - Chronic kidney disease [Unknown]
  - Osteoporosis [Unknown]
  - Dehydration [Unknown]
  - Gastritis erosive [Unknown]
  - Drug abuse [Unknown]
  - Hernia [Unknown]
  - Amenorrhoea [Unknown]
